FAERS Safety Report 21298799 (Version 2)
Quarter: 2022Q4

REPORT INFORMATION
  Report Type: Spontaneous
  Country: US (occurrence: US)
  Receive Date: 20220906
  Receipt Date: 20221105
  Transmission Date: 20230112
  Serious: Yes (Hospitalization, Other)
  Sender: FDA-Public Use
  Company Number: US-Accord-275575

PATIENT
  Age: 69 Year
  Sex: Female
  Weight: 92.80 kg

DRUGS (32)
  1. GLIMEPIRIDE [Suspect]
     Active Substance: GLIMEPIRIDE
     Indication: Diabetes mellitus
     Route: 065
  2. METHOTREXATE SODIUM [Suspect]
     Active Substance: METHOTREXATE SODIUM
     Indication: Acute lymphocytic leukaemia
     Dosage: 50 MG/M2, OVER 2HRS ON DAY 1 OF REGIMEN B;
     Route: 042
  3. INOTUZUMAB OZOGAMICIN [Suspect]
     Active Substance: INOTUZUMAB OZOGAMICIN
     Indication: Acute lymphocytic leukaemia
     Dosage: DAYS 1 AND 8 OF CYCLES 1-2
     Route: 042
     Dates: start: 20210925, end: 20211029
  4. RITUXIMAB [Suspect]
     Active Substance: RITUXIMAB
     Indication: Acute lymphocytic leukaemia
     Dosage: DAY 1 AND 8 OF CYCLES 1-2
     Route: 042
     Dates: start: 20210925, end: 20211029
  5. BLINATUMOMAB [Suspect]
     Active Substance: BLINATUMOMAB
     Indication: Acute lymphocytic leukaemia
     Dosage: 9 UG/DAY, ON DAYS 1-4 CYCLE 5 ONLY) OF REGIMEN C
     Route: 042
     Dates: start: 20211130
  6. PEGFILGRASTIM [Suspect]
     Active Substance: PEGFILGRASTIM
     Indication: Acute lymphocytic leukaemia
     Dosage: 6 MG, ON DAY 4 OF REGIMENS A AND
     Route: 058
  7. DEXAMETHASONE [Suspect]
     Active Substance: DEXAMETHASONE
     Indication: Acute lymphocytic leukaemia
     Dosage: 20 MG, DAILY FOR 4 DAYS ON DAYS 1-4 AND DAYS 11-14 OF REGIMEN A
     Route: 042
  8. CYTARABINE [Suspect]
     Active Substance: CYTARABINE
     Indication: Acute lymphocytic leukaemia
     Dosage: 500 MG/M2, REGIMEN B: OVER 3 HOURS TWICE A DAY X 4 DOSES ON DAYS 2 AND 3
     Route: 042
  9. CYCLOPHOSPHAMIDE [Suspect]
     Active Substance: CYCLOPHOSPHAMIDE
     Indication: Acute lymphocytic leukaemia
     Dosage: 150 MG/M2, OVER 3 HOURS TWICE A DAY ON DAYS 1-3 OF REGIMEN A
     Route: 042
  10. MESNA [Suspect]
     Active Substance: MESNA
     Indication: Acute lymphocytic leukaemia
     Dosage: 300 MG/M2, DAILY OVER 24 HOURS FOR 3 DAYS ON DAYS 1-3 OF REGIMEN A
     Route: 042
  11. ABILIFY [Concomitant]
     Active Substance: ARIPIPRAZOLE
  12. DULAGLUTIDE [Concomitant]
     Active Substance: DULAGLUTIDE
  13. LEXAPRO [Concomitant]
     Active Substance: ESCITALOPRAM OXALATE
  14. LASIX [Concomitant]
     Active Substance: FUROSEMIDE
  15. NEURONTIN [Concomitant]
     Active Substance: GABAPENTIN
  16. NORCO [Concomitant]
     Active Substance: ACETAMINOPHEN\HYDROCODONE BITARTRATE
  17. ATARAX [Concomitant]
     Active Substance: HYDROXYZINE HYDROCHLORIDE
  18. LEVAQUIN [Concomitant]
     Active Substance: LEVOFLOXACIN
  19. ATIVAN [Concomitant]
     Active Substance: LORAZEPAM
  20. GLUCOPHAGE [Concomitant]
     Active Substance: METFORMIN HYDROCHLORIDE
  21. LOPRESSOR [Concomitant]
     Active Substance: METOPROLOL TARTRATE
  22. PRILOSEC [Concomitant]
     Active Substance: OMEPRAZOLE MAGNESIUM
  23. DITROPAN [Concomitant]
     Active Substance: OXYBUTYNIN CHLORIDE
  24. NOXAFIL [Concomitant]
     Active Substance: POSACONAZOLE
  25. SENOKOT-S [Concomitant]
     Active Substance: DOCUSATE SODIUM\SENNOSIDES
  26. ZOCOR [Concomitant]
     Active Substance: SIMVASTATIN
  27. VALTREX [Concomitant]
     Active Substance: VALACYCLOVIR HYDROCHLORIDE
  28. DIOVAN [Concomitant]
     Active Substance: VALSARTAN
  29. AMBIEN [Concomitant]
     Active Substance: ZOLPIDEM TARTRATE
  30. METHOTREXATE SODIUM [Suspect]
     Active Substance: METHOTREXATE SODIUM
     Indication: Acute lymphocytic leukaemia
     Dosage: 200 MG/M2, OVER 22 HOURS 200 MG/M2, OVER 22 HOURS
     Route: 042
  31. BLINATUMOMAB [Suspect]
     Active Substance: BLINATUMOMAB
     Indication: Acute lymphocytic leukaemia
     Dosage: 28 UG, ON DAYS 4-29 (CYCLE 5 ONLY) OF REGIMEN C
     Route: 042
     Dates: start: 20211130
  32. BLINATUMOMAB [Suspect]
     Active Substance: BLINATUMOMAB
     Indication: Acute lymphocytic leukaemia
     Dosage: 28 UG, ON DAYS 1 -29 (CYCLES 6, 11 AND 12) OF REGIMEN C
     Route: 042
     Dates: end: 20220507

REACTIONS (1)
  - Colitis [Recovered/Resolved]

NARRATIVE: CASE EVENT DATE: 20220813
